FAERS Safety Report 5720277-X (Version None)
Quarter: 2008Q2

REPORT INFORMATION
  Report Type: 
  Country: None (occurrence: None)
  Receive Date: 20080428
  Receipt Date: 20080414
  Transmission Date: 20081010
  Serious: Yes (Death, Other)
  Sender: FDA-Public Use
  Company Number: BE-ROCHE-558898

PATIENT
  Sex: Male

DRUGS (4)
  1. PEGASYS [Suspect]
     Route: 058
     Dates: start: 20080124, end: 20080301
  2. COPEGUS [Suspect]
     Dosage: DOSAGE: DAILY
     Route: 048
     Dates: start: 20080122, end: 20080301
  3. NEXIUM [Concomitant]
     Dosage: DRUG REPORTED: NEXIAM DOSGE REPORTED: DAILY
     Route: 048
  4. FLUDEX [Concomitant]
     Dosage: DOSGE REPORTED: DAILY
     Route: 048

REACTIONS (5)
  - ANGINA PECTORIS [None]
  - COMA [None]
  - CORONARY ARTERY DISEASE [None]
  - MYOCARDIAL INFARCTION [None]
  - SHOCK [None]
